FAERS Safety Report 14006183 (Version 1)
Quarter: 2017Q3

REPORT INFORMATION
  Report Type: Spontaneous
  Country: US (occurrence: US)
  Receive Date: 20170924
  Receipt Date: 20170924
  Transmission Date: 20171128
  Serious: Yes (Other)
  Sender: FDA-Public Use
  Company Number: US-MYLANLABS-2017M1057870

PATIENT
  Age: 61 Year
  Sex: Female

DRUGS (1)
  1. METOPROLOL TARTRATE TABLETS USP [Suspect]
     Active Substance: METOPROLOL TARTRATE
     Indication: HEART RATE ABNORMAL
     Dosage: 25 MG, BID
     Route: 048
     Dates: start: 20170827, end: 201709

REACTIONS (3)
  - Heart rate increased [Recovered/Resolved]
  - Atrial fibrillation [Recovered/Resolved]
  - Blood pressure increased [Recovered/Resolved]

NARRATIVE: CASE EVENT DATE: 201709
